FAERS Safety Report 6453468-3 (Version None)
Quarter: 2009Q4

REPORT INFORMATION
  Report Type: 
  Country: None (occurrence: None)
  Receive Date: 20091117
  Receipt Date: 20091104
  Transmission Date: 20100525
  Serious: Yes (Death, Life-Threatening)
  Sender: FDA-Public Use
  Company Number: 2009AL007163

PATIENT
  Age: 95 Year
  Sex: Female

DRUGS (3)
  1. METOCLOPRAMIDE [Suspect]
     Dosage: X1; PO
     Route: 048
  2. TRAMADOL HYDROCHLORIDE [Suspect]
     Dosage: 50 MG; X1; IV
     Route: 042
  3. ETONOX [Concomitant]

REACTIONS (5)
  - BACK INJURY [None]
  - NO THERAPEUTIC RESPONSE [None]
  - OBSTRUCTIVE AIRWAYS DISORDER [None]
  - RESPIRATORY ARREST [None]
  - SWELLING [None]
